FAERS Safety Report 14014562 (Version 3)
Quarter: 2017Q4

REPORT INFORMATION
  Report Type: Report from Study
  Country: None (occurrence: TR)
  Receive Date: 20170927
  Receipt Date: 20171007
  Transmission Date: 20180321
  Serious: Yes (Hospitalization, Other)
  Sender: FDA-Public Use
  Company Number: TR-ABBVIE-17K-161-2112926-00

PATIENT
  Age: 77 Year
  Sex: Male
  Weight: 75 kg

DRUGS (6)
  1. CLEXANE [Concomitant]
     Active Substance: ENOXAPARIN SODIUM
     Indication: THROMBOSIS PROPHYLAXIS
     Route: 058
     Dates: start: 201708
  2. REMERON [Concomitant]
     Active Substance: MIRTAZAPINE
     Indication: DEPRESSION
     Dosage: 1X1/2
     Route: 050
     Dates: start: 2012
  3. RESOURCE [Concomitant]
     Active Substance: AMINO ACIDS\CARBOHYDRATES\MINERALS\SOYBEAN OIL\VITAMINS
     Indication: MALNUTRITION
     Route: 050
     Dates: start: 201707
  4. DUODOPA [Suspect]
     Active Substance: CARBIDOPA\LEVODOPA
     Indication: PARKINSON^S DISEASE
     Dosage: MORNING DOSE(ML):5.00??CONTINOUS DOSE(ML):1.00??EXTRA DOSE(ML):0.50
     Route: 050
     Dates: start: 20170922
  5. ZINC OXIDE. [Concomitant]
     Active Substance: ZINC OXIDE
     Indication: DECUBITUS ULCER
     Route: 062
     Dates: start: 201708
  6. PANTO [Concomitant]
     Active Substance: PANTOPRAZOLE SODIUM
     Indication: GASTROINTESTINAL DISORDER
     Route: 042
     Dates: start: 201709

REACTIONS (4)
  - Urinary tract infection [Recovered/Resolved]
  - Hypotension [Recovered/Resolved]
  - Hyperthermia [Recovered/Resolved]
  - Pneumonia aspiration [Recovered/Resolved]

NARRATIVE: CASE EVENT DATE: 20170924
